APPROVED DRUG PRODUCT: NYSTATIN
Active Ingredient: NYSTATIN
Strength: 100,000 UNITS/ML
Dosage Form/Route: SUSPENSION;ORAL
Application: A062571 | Product #001
Applicant: ALPHARMA US PHARMACEUTICALS DIVISION
Approved: Oct 29, 1985 | RLD: No | RS: No | Type: DISCN